FAERS Safety Report 7856926-X (Version None)
Quarter: 2011Q4

REPORT INFORMATION
  Report Type: 
  Country: None (occurrence: None)
  Receive Date: 20111027
  Receipt Date: 20111017
  Transmission Date: 20120403
  Serious: Yes (Other)
  Sender: FDA-Public Use
  Company Number: NL-AMGEN-NLDSP2011054261

PATIENT
  Age: 70 Year
  Sex: Female

DRUGS (8)
  1. PANTOZOL                           /01263202/ [Concomitant]
     Dosage: UNK
  2. ENBREL [Suspect]
     Indication: PSORIATIC ARTHROPATHY
     Dosage: 25 MG, 2X/WEEK
     Dates: start: 20110823
  3. FOLIC ACID [Concomitant]
     Dosage: UNK
  4. ASCAL                              /00002702/ [Concomitant]
     Dosage: UNK
  5. METHOTREXATE SODIUM [Concomitant]
     Dosage: UNK
  6. HYDROCHLOROTHIAZID [Concomitant]
     Dosage: UNK
  7. TRAMADOL HCL [Concomitant]
     Dosage: UNK
  8. NEBIVOLOL HCL [Concomitant]
     Dosage: UNK

REACTIONS (1)
  - PSORIATIC ARTHROPATHY [None]
